FAERS Safety Report 11069410 (Version 1)
Quarter: 2015Q2

REPORT INFORMATION
  Report Type: Spontaneous
  Country: FR (occurrence: FR)
  Receive Date: 20150427
  Receipt Date: 20150427
  Transmission Date: 20150821
  Serious: Yes (Hospitalization, Other)
  Sender: FDA-Public Use
  Company Number: FR-SHIRE-FR201503348

PATIENT
  Age: 80 Year
  Sex: Female

DRUGS (1)
  1. XAGRID [Suspect]
     Active Substance: ANAGRELIDE HYDROCHLORIDE
     Indication: ESSENTIAL THROMBOCYTHAEMIA
     Dosage: 1 MG (TWO 0.5 MG CAPSULES), 1X/DAY:QD
     Route: 048
     Dates: start: 20141212, end: 20150214

REACTIONS (4)
  - Disturbance in attention [Recovered/Resolved]
  - Loss of consciousness [Recovered/Resolved]
  - Clonic convulsion [Recovered/Resolved]
  - Confusional state [Recovered/Resolved]

NARRATIVE: CASE EVENT DATE: 201412
